FAERS Safety Report 6122267-4 (Version None)
Quarter: 2009Q1

REPORT INFORMATION
  Report Type: 
  Country: None (occurrence: None)
  Receive Date: 20090318
  Receipt Date: 20090309
  Transmission Date: 20090719
  Serious: Yes (Disabling, Other)
  Sender: FDA-Public Use
  Company Number: BR-BAYER-200913382LA

PATIENT
  Age: 40 Year
  Sex: Female

DRUGS (1)
  1. BETAFERON [Suspect]
     Indication: MULTIPLE SCLEROSIS
     Route: 058
     Dates: start: 20081204

REACTIONS (6)
  - DELUSION [None]
  - FEAR [None]
  - FEELING OF DESPAIR [None]
  - HALLUCINATION [None]
  - HALLUCINATION, AUDITORY [None]
  - RESTLESSNESS [None]
